FAERS Safety Report 8883413 (Version 1)
Quarter: 2012Q4

REPORT INFORMATION
  Report Type: 
  Country: CA (occurrence: CA)
  Receive Date: 20121102
  Receipt Date: 20121102
  Transmission Date: 20130627
  Serious: Yes (Death)
  Sender: FDA-Public Use
  Company Number: CA-MERCK-1211CAN000945

PATIENT
  Sex: Male

DRUGS (1)
  1. INTRON A [Suspect]
     Indication: HEPATOCELLULAR CARCINOMA
     Dosage: 6 million IU, UNK
     Route: 058
     Dates: start: 201206

REACTIONS (1)
  - Death [Fatal]
